FAERS Safety Report 23085663 (Version 4)
Quarter: 2023Q4

REPORT INFORMATION
  Report Type: Spontaneous
  Country: US (occurrence: US)
  Receive Date: 20231019
  Receipt Date: 20231025
  Transmission Date: 20240110
  Serious: No
  Sender: FDA-Public Use
  Company Number: US-PFIZER INC-PV202300171442

PATIENT
  Age: 41 Year
  Sex: Female
  Weight: 47.63 kg

DRUGS (1)
  1. SULFASALAZINE [Suspect]
     Active Substance: SULFASALAZINE
     Indication: Rheumatoid arthritis
     Dosage: 500 MG, 2X/DAY; (A DAY EVERY 12 HOURS)
     Route: 048
     Dates: start: 20231005, end: 20231011

REACTIONS (4)
  - Poor quality product administered [Recovered/Resolved]
  - Product odour abnormal [Recovered/Resolved]
  - Nausea [Recovered/Resolved]
  - Vomiting [Recovered/Resolved]

NARRATIVE: CASE EVENT DATE: 20231005
